FAERS Safety Report 20964794 (Version 2)
Quarter: 2024Q4

REPORT INFORMATION
  Report Type: Spontaneous
  Country: IT (occurrence: IT)
  Receive Date: 20220616
  Receipt Date: 20241008
  Transmission Date: 20250115
  Serious: Yes (Other)
  Sender: RANBAXY
  Company Number: IT-SUN PHARMACEUTICAL INDUSTRIES LTD-2022R1-340626

PATIENT
  Age: 44 Year
  Sex: Female

DRUGS (3)
  1. PREDNISONE [Suspect]
     Active Substance: PREDNISONE
     Indication: Transplant dysfunction
     Dosage: LOW DOSE
     Route: 065
     Dates: start: 2003
  2. TACROLIMUS [Suspect]
     Active Substance: TACROLIMUS
     Indication: Transplant dysfunction
     Dosage: UNK
     Route: 065
     Dates: start: 2003
  3. CYCLOSPORINE [Suspect]
     Active Substance: CYCLOSPORINE
     Indication: Transplant dysfunction
     Dosage: UNK
     Route: 065
     Dates: start: 1998, end: 2003

REACTIONS (3)
  - Plasmacytoma [Unknown]
  - Post transplant lymphoproliferative disorder [Recovering/Resolving]
  - Plasmablastic lymphoma [Recovering/Resolving]

NARRATIVE: CASE EVENT DATE: 20180101
